FAERS Safety Report 9261003 (Version 1)
Quarter: 2013Q2

REPORT INFORMATION
  Report Type: Spontaneous
  Country: US (occurrence: US)
  Receive Date: 20130429
  Receipt Date: 20130429
  Transmission Date: 20140414
  Serious: No
  Sender: FDA-Public Use
  Company Number: US-AMGEN-USASP2012045232

PATIENT
  Age: 68 Year
  Sex: Female
  Weight: 81 kg

DRUGS (5)
  1. SENSIPAR [Suspect]
     Indication: HYPERPARATHYROIDISM SECONDARY
     Dosage: 15 MG, QD
     Route: 048
     Dates: start: 20120716, end: 20120731
  2. MIRAPEX [Suspect]
     Dosage: 0.5 MG, TID
     Route: 048
     Dates: start: 20110519
  3. TRAMADOL [Suspect]
     Dosage: 50 MG, BID
     Route: 048
     Dates: start: 20120519
  4. WELLBUTRIN [Suspect]
     Dosage: 100 MG, QD
     Route: 048
     Dates: start: 20120519
  5. OXYCODONE [Suspect]
     Dosage: 5 MG, EVERY 4-6 HOURS
     Route: 048
     Dates: start: 20120131

REACTIONS (2)
  - Hypersomnia [Recovered/Resolved]
  - Fatigue [Recovered/Resolved]
